FAERS Safety Report 25867572 (Version 2)
Quarter: 2025Q4

REPORT INFORMATION
  Report Type: Spontaneous
  Country: EU (occurrence: EU)
  Receive Date: 20251001
  Receipt Date: 20251003
  Transmission Date: 20260118
  Serious: Yes (Other)
  Sender: CELLTRION
  Company Number: EU-ABBVIE-6174950

PATIENT

DRUGS (9)
  1. ADALIMUMAB [Suspect]
     Active Substance: ADALIMUMAB
     Indication: Crohn^s disease
     Dosage: UNK
     Route: 058
     Dates: start: 2020
  2. ADALIMUMAB [Suspect]
     Active Substance: ADALIMUMAB
     Indication: Spondylitis
  3. USTEKINUMAB [Suspect]
     Active Substance: USTEKINUMAB
     Indication: Spondylitis
     Dosage: 5 MG/ML CONCENTRATION
     Route: 042
     Dates: start: 2021
  4. USTEKINUMAB [Suspect]
     Active Substance: USTEKINUMAB
     Dosage: 40 ML, EVERY 1 HOUR (5?MG/ML CONCENTRATION, AT AN INFUSION RATE OF 40?ML/H, EVERY 1 HOUR
     Route: 050
  5. USTEKINUMAB [Suspect]
     Active Substance: USTEKINUMAB
     Dosage: 90 MG, EVERY 8 WEEKS (90MG/ML CONCENTRATION)
     Route: 058
     Dates: start: 2021
  6. BUDESONIDE [Concomitant]
     Active Substance: BUDESONIDE
     Indication: Spondylitis
     Route: 065
  7. CETIRIZINE [Concomitant]
     Active Substance: CETIRIZINE HYDROCHLORIDE
     Indication: Allergy prophylaxis
     Dosage: 10 MG
     Route: 065
  8. METHYLPREDNISOLONE [Concomitant]
     Active Substance: METHYLPREDNISOLONE
     Indication: Allergy prophylaxis
     Dosage: 60 MG
     Route: 065
  9. MONTELUKAST [Concomitant]
     Active Substance: MONTELUKAST
     Indication: Allergy prophylaxis
     Dosage: 10 MG
     Route: 065

REACTIONS (7)
  - Type I hypersensitivity [Recovered/Resolved]
  - Drug ineffective [Unknown]
  - Drug level below therapeutic [Unknown]
  - Drug specific antibody present [Unknown]
  - Injection site induration [Unknown]
  - Injection site oedema [Recovering/Resolving]
  - Intentional product use issue [Unknown]

NARRATIVE: CASE EVENT DATE: 20230101
